FAERS Safety Report 6844985-2 (Version None)
Quarter: 2010Q3

REPORT INFORMATION
  Report Type: 
  Country: None (occurrence: None)
  Receive Date: 20100713
  Receipt Date: 20100628
  Transmission Date: 20110219
  Serious: Yes (Hospitalization)
  Sender: FDA-Public Use
  Company Number: MPS1-1000341

PATIENT
  Age: 3 Year
  Sex: Female
  Weight: 13.6 kg

DRUGS (9)
  1. ALDURAZYME [Suspect]
     Indication: MUCOPOLYSACCHARIDOSIS I
     Dosage: SEE IMAGE
     Route: 042
     Dates: start: 20090917, end: 20090917
  2. ALDURAZYME [Suspect]
     Indication: MUCOPOLYSACCHARIDOSIS I
     Dosage: SEE IMAGE
     Route: 042
     Dates: start: 20100108, end: 20100108
  3. ALDURAZYME [Suspect]
     Indication: MUCOPOLYSACCHARIDOSIS I
     Dosage: SEE IMAGE
     Route: 042
     Dates: start: 20090918, end: 20100321
  4. ALDURAZYME [Suspect]
     Indication: MUCOPOLYSACCHARIDOSIS I
     Dosage: SEE IMAGE
     Route: 042
     Dates: start: 20100510, end: 20100510
  5. CYCLOSPORINE [Suspect]
     Indication: PRODUCT USED FOR UNKNOWN INDICATION
     Dosage: 60 MG, TID, PARENTERAL, 22 MG, TID, INTRAVENOUS
     Route: 051
  6. SIMILAC (CARBOHYDRATES NOS, FATS NOS, LINOLEIC ACID, MINERALS NOS, PRO [Suspect]
     Indication: MEDICAL DIET
  7. PEPTAMEN (NUTRIENTS NOS) [Concomitant]
  8. BENADRYL [Concomitant]
  9. HYDROXYZINE [Concomitant]

REACTIONS (17)
  - ANAEMIA HAEMOLYTIC AUTOIMMUNE [None]
  - ASCITES [None]
  - DIARRHOEA [None]
  - HYPERVOLAEMIA [None]
  - HYPOMAGNESAEMIA [None]
  - IRRITABILITY [None]
  - LETHARGY [None]
  - NAUSEA [None]
  - NEPHROTIC SYNDROME [None]
  - PAIN [None]
  - PERICARDIAL EFFUSION [None]
  - PYREXIA [None]
  - RENAL FAILURE ACUTE [None]
  - SECONDARY HYPERTENSION [None]
  - STEM CELL TRANSPLANT [None]
  - UMBILICAL HERNIA [None]
  - VOMITING [None]
